FAERS Safety Report 12913855 (Version 2)
Quarter: 2017Q2

REPORT INFORMATION
  Report Type: Spontaneous
  Country: US (occurrence: US)
  Receive Date: 20161105
  Receipt Date: 20170413
  Transmission Date: 20170830
  Serious: Yes (Other)
  Sender: FDA-Public Use
  Company Number: US-TEVA-709920ACC

PATIENT
  Sex: Female
  Weight: 86.71 kg

DRUGS (3)
  1. PARAGARD T 380A [Suspect]
     Active Substance: COPPER
     Indication: CONTRACEPTION
     Dates: start: 20160718, end: 20161021
  2. PARAGARD T 380A [Suspect]
     Active Substance: COPPER
     Dates: start: 20161111, end: 20161208
  3. MULTIVITAMINS [Concomitant]
     Active Substance: VITAMINS

REACTIONS (2)
  - Pelvic pain [Recovered/Resolved with Sequelae]
  - Device dislocation [Recovered/Resolved with Sequelae]
